FAERS Safety Report 14874154 (Version 7)
Quarter: 2018Q4

REPORT INFORMATION
  Report Type: Spontaneous
  Country: IE (occurrence: IE)
  Receive Date: 20180510
  Receipt Date: 20181017
  Transmission Date: 20190204
  Serious: Yes (Other)
  Sender: FDA-Public Use
  Company Number: IE-MYLANLABS-2016M1038249

PATIENT
  Age: 55 Year
  Sex: Female

DRUGS (8)
  1. GEMCITABINE [Suspect]
     Active Substance: GEMCITABINE\GEMCITABINE HYDROCHLORIDE
     Indication: PRODUCT USED FOR UNKNOWN INDICATION
     Dosage: UNK
  2. CLOZARIL [Suspect]
     Active Substance: CLOZAPINE
     Indication: BORDERLINE PERSONALITY DISORDER
     Dosage: 350 MG, QD
     Route: 048
     Dates: start: 20180603
  3. CLOZARIL [Suspect]
     Active Substance: CLOZAPINE
     Indication: DEPRESSION
     Dosage: UNK
     Route: 048
     Dates: start: 20161026, end: 201805
  4. CLOZARIL [Suspect]
     Active Substance: CLOZAPINE
     Indication: SCHIZOPHRENIA
  5. CLOZARIL [Suspect]
     Active Substance: CLOZAPINE
     Indication: IMPULSIVE BEHAVIOUR
     Dosage: UNK
     Route: 048
     Dates: start: 201810
  6. CLOZARIL [Suspect]
     Active Substance: CLOZAPINE
     Indication: SUICIDAL BEHAVIOUR
  7. CISPLATIN. [Suspect]
     Active Substance: CISPLATIN
     Indication: PRODUCT USED FOR UNKNOWN INDICATION
     Dosage: UNK
  8. CLOZARIL [Suspect]
     Active Substance: CLOZAPINE
     Indication: AFFECTIVE DISORDER
     Dosage: UNK
     Route: 048
     Dates: start: 20140312, end: 20160910

REACTIONS (8)
  - Thrombocytopenia [Not Recovered/Not Resolved]
  - Product use in unapproved indication [Unknown]
  - White blood cell count increased [Recovered/Resolved]
  - Breast cancer [Unknown]
  - Vulval cancer [Unknown]
  - Neutropenia [Recovered/Resolved]
  - Neutrophil count increased [Recovered/Resolved]
  - White blood cell count decreased [Recovering/Resolving]

NARRATIVE: CASE EVENT DATE: 20140312
